FAERS Safety Report 17505468 (Version 3)
Quarter: 2020Q2

REPORT INFORMATION
  Report Type: Spontaneous
  Country: US (occurrence: US)
  Receive Date: 20200305
  Receipt Date: 20200605
  Transmission Date: 20200713
  Serious: Yes (Other)
  Sender: FDA-Public Use
  Company Number: US-BAYER-2020-039889

PATIENT
  Age: 29 Year
  Sex: Female
  Weight: 106.12 kg

DRUGS (9)
  1. FLAGYL [METRONIDAZOLE BENZOATE] [Concomitant]
     Active Substance: METRONIDAZOLE BENZOATE
     Dosage: 500 MG, BID
     Dates: start: 20180416, end: 20180422
  2. BETADINE [Concomitant]
     Active Substance: POVIDONE-IODINE
     Dosage: UNK UNK, ONCE
     Route: 061
     Dates: start: 20180416, end: 20180416
  3. COLACE [Concomitant]
     Active Substance: DOCUSATE SODIUM
     Dosage: 1 DF, TID
     Route: 048
  4. IBUPROFEN. [Concomitant]
     Active Substance: IBUPROFEN
     Dosage: 1 DF, Q8HR
     Route: 048
     Dates: end: 20200117
  5. FERROUS SULFATE. [Concomitant]
     Active Substance: FERROUS SULFATE
     Dosage: 1 DF, TID
     Route: 048
  6. KEFLEX [Concomitant]
     Active Substance: CEPHALEXIN
     Dosage: 1 DF, PRN
     Route: 048
     Dates: start: 20200129
  7. MIRENA [Suspect]
     Active Substance: LEVONORGESTREL
     Indication: CONTRACEPTION
     Dosage: 20 ?G PER DAY CONTINUOUSLY
     Route: 015
     Dates: start: 20180416, end: 20200107
  8. PERCOCET [Concomitant]
     Active Substance: ACETAMINOPHEN\OXYCODONE HYDROCHLORIDE
     Indication: PAIN
     Dosage: UNK, PRN
     Route: 048
     Dates: end: 20200117
  9. PROVERA [Concomitant]
     Active Substance: MEDROXYPROGESTERONE ACETATE
     Dosage: UNK UNK, QD
     Route: 048
     Dates: end: 20200117

REACTIONS (23)
  - Pregnancy with contraceptive device [None]
  - Drug ineffective [None]
  - Depressed mood [None]
  - Pelvic pain [Not Recovered/Not Resolved]
  - Post procedural discomfort [None]
  - Bacterial vaginosis [None]
  - Vaginal infection [Not Recovered/Not Resolved]
  - Device dislocation [Recovered/Resolved]
  - Dysuria [None]
  - Urinary tract infection [Not Recovered/Not Resolved]
  - Vaginal haemorrhage [Recovered/Resolved]
  - Pelvic pain [None]
  - Perineal pain [Not Recovered/Not Resolved]
  - Abortion missed [None]
  - Abdominal pain lower [None]
  - Menorrhagia [None]
  - Uterine haemorrhage [Recovered/Resolved]
  - Anaemia [Recovered/Resolved]
  - Uterine leiomyoma [Recovered/Resolved]
  - Adnexa uteri pain [None]
  - Vaginal haemorrhage [Recovered/Resolved]
  - Genital haemorrhage [None]
  - Vaginal discharge [None]

NARRATIVE: CASE EVENT DATE: 20180416
